FAERS Safety Report 13605094 (Version 1)
Quarter: 2017Q2

REPORT INFORMATION
  Report Type: Spontaneous
  Country: CN (occurrence: CN)
  Receive Date: 20170602
  Receipt Date: 20170602
  Transmission Date: 20170830
  Serious: Yes (Other)
  Sender: FDA-Public Use
  Company Number: CN-JNJFOC-20170521470

PATIENT

DRUGS (3)
  1. MOTRIN [Suspect]
     Active Substance: IBUPROFEN
     Indication: PATENT DUCTUS ARTERIOSUS
     Route: 065
  2. MOTRIN [Suspect]
     Active Substance: IBUPROFEN
     Indication: PATENT DUCTUS ARTERIOSUS
     Dosage: AFTER 48 HOURS
     Route: 065
  3. MOTRIN [Suspect]
     Active Substance: IBUPROFEN
     Indication: PATENT DUCTUS ARTERIOSUS
     Dosage: AFTER 24 HOURS
     Route: 065

REACTIONS (7)
  - Impaired gastric emptying [Recovered/Resolved]
  - Oliguria [Recovered/Resolved]
  - Product use in unapproved indication [Recovered/Resolved]
  - Abdominal distension [Recovered/Resolved]
  - Gastrointestinal haemorrhage [Recovered/Resolved]
  - Incorrect route of drug administration [Recovered/Resolved]
  - Off label use [Recovered/Resolved]
